FAERS Safety Report 15514586 (Version 1)
Quarter: 2018Q4

REPORT INFORMATION
  Report Type: Spontaneous
  Country: IT (occurrence: IT)
  Receive Date: 20181016
  Receipt Date: 20181016
  Transmission Date: 20190205
  Serious: Yes (Hospitalization)
  Sender: FDA-Public Use
  Company Number: IT-ALLERGAN-1842105US

PATIENT
  Age: 46 Year
  Sex: Male

DRUGS (3)
  1. ACAMPROSATE CALCIUM - BP [Suspect]
     Active Substance: ACAMPROSATE CALCIUM
     Indication: ALCOHOLISM
  2. ACAMPROSATE CALCIUM - BP [Suspect]
     Active Substance: ACAMPROSATE CALCIUM
     Indication: INTENTIONAL PRODUCT MISUSE
  3. ACAMPROSATE CALCIUM - BP [Suspect]
     Active Substance: ACAMPROSATE CALCIUM
     Indication: INTENTIONAL SELF-INJURY
     Dosage: 50 DF (OF 333MG EACH ONE), UNK
     Route: 048
     Dates: start: 20180802, end: 20180802

REACTIONS (2)
  - Drug abuse [Recovering/Resolving]
  - Vomiting [Recovering/Resolving]

NARRATIVE: CASE EVENT DATE: 20180802
